FAERS Safety Report 7327767-7 (Version None)
Quarter: 2011Q1

REPORT INFORMATION
  Report Type: 
  Country: None (occurrence: None)
  Receive Date: 20110303
  Receipt Date: 20110218
  Transmission Date: 20110831
  Serious: Yes (Hospitalization, Other)
  Sender: FDA-Public Use
  Company Number: US-SOLVAY-00211001349

PATIENT
  Age: 75 Year
  Sex: Female
  Weight: 74 kg

DRUGS (2)
  1. MULTIPLE UNKNOWN CONCOMITANT MEDICATIONS [Concomitant]
     Indication: PRODUCT USED FOR UNKNOWN INDICATION
     Dosage: DAILY DOSE:  UNKNOWN
     Route: 065
  2. CREON [Suspect]
     Indication: PANCREATIC DISORDER
     Dosage: DAILY DOSE:  UNKNOWN, 6000USP UNITS OF LIPASE 19000 USP UNITS OF PROTEASE 30000 UPS UNITS OF AMYLASE
     Route: 065

REACTIONS (2)
  - PANCREATIC DISORDER [None]
  - DEVICE OCCLUSION [None]
